FAERS Safety Report 8518371-3 (Version None)
Quarter: 2012Q3

REPORT INFORMATION
  Report Type: 
  Country: None (occurrence: None)
  Receive Date: 20120718
  Receipt Date: 20120418
  Transmission Date: 20120928
  Serious: Yes (Other)
  Sender: FDA-Public Use
  Company Number: CN-JNJFOC-20120705984

PATIENT
  Sex: Male
  Weight: 55 kg

DRUGS (4)
  1. BORTEZOMIB [Suspect]
     Indication: LEUKAEMIA
     Dosage: FREQUENCY:1, INTERVAL:3
     Route: 042
     Dates: start: 20110505, end: 20110512
  2. BORTEZOMIB [Suspect]
     Route: 042
     Dates: start: 20110515
  3. DOXORUBICIN HCL [Suspect]
     Indication: LEUKAEMIA
     Route: 042
     Dates: start: 20110505
  4. DEXAMETHASONE [Suspect]
     Indication: LEUKAEMIA
     Route: 065
     Dates: start: 20110505

REACTIONS (5)
  - WEIGHT INCREASED [None]
  - FACE OEDEMA [None]
  - INTESTINAL OBSTRUCTION [None]
  - URINE OUTPUT DECREASED [None]
  - OEDEMA PERIPHERAL [None]
